FAERS Safety Report 8983231 (Version 1)
Quarter: 2012Q4

REPORT INFORMATION
  Report Type: 
  Country: MX (occurrence: MX)
  Receive Date: 20121224
  Receipt Date: 20121224
  Transmission Date: 20130627
  Serious: Yes (Other)
  Sender: FDA-Public Use
  Company Number: PHHY2012MX119155

PATIENT
  Age: 58 Year
  Sex: Female

DRUGS (3)
  1. EXELON PATCH [Suspect]
     Indication: DEMENTIA ALZHEIMER^S TYPE
     Dosage: 9.5 mg, Q72H
     Route: 062
     Dates: start: 201005
  2. EBIXA [Concomitant]
     Dosage: 1 DF, daily
     Dates: start: 200812
  3. RISPERIDONE [Concomitant]
     Dosage: 0.25 DF, UNK
     Dates: start: 201002

REACTIONS (5)
  - Nervous system disorder [Unknown]
  - Discomfort [Not Recovered/Not Resolved]
  - Incorrect dose administered [Unknown]
  - Abdominal discomfort [Not Recovered/Not Resolved]
  - Restlessness [Not Recovered/Not Resolved]
